FAERS Safety Report 9316209 (Version 2)
Quarter: 2013Q2

REPORT INFORMATION
  Report Type: Report from Study
  Country: NZ (occurrence: NZ)
  Receive Date: 20130530
  Receipt Date: 20130624
  Transmission Date: 20140414
  Serious: Yes (Other)
  Sender: FDA-Public Use
  Company Number: PHHY2013NZ053786

PATIENT
  Age: 88 Year
  Sex: Female
  Weight: 63 kg

DRUGS (3)
  1. CLOZARIL [Suspect]
     Indication: SCHIZOPHRENIA
     Dosage: 75 MG, AT NIGHT
     Route: 048
     Dates: start: 20040524
  2. CLOZARIL [Suspect]
     Dosage: 200 MG, (TWO DOSAGES OF THE 100 MG )
  3. CLOZARIL [Suspect]
     Dosage: 300 UNK, AT NIGHT

REACTIONS (7)
  - Drug dispensing error [Unknown]
  - Pyrexia [Recovered/Resolved]
  - Malaise [Recovered/Resolved]
  - Infection [Recovered/Resolved]
  - Nasopharyngitis [Unknown]
  - Sedation [Recovered/Resolved]
  - Somnolence [Recovered/Resolved]
